FAERS Safety Report 4791035-8 (Version None)
Quarter: 2005Q4

REPORT INFORMATION
  Report Type: 
  Country: None (occurrence: None)
  Receive Date: 20051007
  Receipt Date: 20051004
  Transmission Date: 20060501
  Serious: Yes (Other)
  Sender: FDA-Public Use
  Company Number: CH-JNJFOC-20051000481

PATIENT
  Sex: Female
  Weight: 82 kg

DRUGS (1)
  1. DUROGESIC MATRIX [Suspect]
     Route: 062

REACTIONS (1)
  - BLOOD GLUCOSE INCREASED [None]
